FAERS Safety Report 5820886-3 (Version None)
Quarter: 2008Q3

REPORT INFORMATION
  Report Type: 
  Country: None (occurrence: None)
  Receive Date: 20080724
  Receipt Date: 20080715
  Transmission Date: 20090109
  Serious: Yes (Hospitalization)
  Sender: FDA-Public Use
  Company Number: PHHO2008CA08929

PATIENT
  Sex: Female
  Weight: 51.8 kg

DRUGS (6)
  1. GLEEVEC [Suspect]
     Indication: ACUTE LYMPHOCYTIC LEUKAEMIA
     Dosage: UNK
  2. ARTIFICIAL TEARS [Concomitant]
  3. HYDROMORPHONE HCL [Concomitant]
  4. ACYCLOVIR [Concomitant]
  5. FLUCONAZOLE [Concomitant]
  6. MIRTAZAPINE [Concomitant]

REACTIONS (13)
  - ALPHA HAEMOLYTIC STREPTOCOCCAL INFECTION [None]
  - CATHETER SITE RELATED REACTION [None]
  - CHILLS [None]
  - DISEASE PROGRESSION [None]
  - EYE PAIN [None]
  - FEBRILE NEUTROPENIA [None]
  - FLUSHING [None]
  - HYPOTENSION [None]
  - PHOTOPHOBIA [None]
  - PHOTOSENSITIVITY REACTION [None]
  - PYREXIA [None]
  - SINUS TACHYCARDIA [None]
  - SKIN WARM [None]
